FAERS Safety Report 15656610 (Version 2)
Quarter: 2019Q1

REPORT INFORMATION
  Report Type: Spontaneous
  Country: US (occurrence: US)
  Receive Date: 20181126
  Receipt Date: 20190214
  Transmission Date: 20190417
  Serious: Yes (Disabling, Other)
  Sender: FDA-Public Use
  Company Number: US-PFIZER INC-2018477956

PATIENT
  Age: 64 Year
  Sex: Female
  Weight: 58 kg

DRUGS (2)
  1. PREMARIN [Suspect]
     Active Substance: ESTROGENS, CONJUGATED
     Indication: HOT FLUSH
  2. PREMARIN [Suspect]
     Active Substance: ESTROGENS, CONJUGATED
     Indication: MOOD SWINGS
     Dosage: 0.625 MG, 1X/DAY
     Route: 048
     Dates: start: 1997, end: 20181115

REACTIONS (9)
  - Diverticulitis [Unknown]
  - Diverticulum intestinal [Unknown]
  - Intervertebral disc protrusion [Not Recovered/Not Resolved]
  - Disorientation [Unknown]
  - Hyperhidrosis [Unknown]
  - Mitral valve prolapse [Unknown]
  - Malaise [Unknown]
  - Joint swelling [Not Recovered/Not Resolved]
  - Gastrointestinal disorder [Unknown]

NARRATIVE: CASE EVENT DATE: 2016
